FAERS Safety Report 8839812 (Version 1)
Quarter: 2012Q4

REPORT INFORMATION
  Report Type: 
  Country: US (occurrence: US)
  Receive Date: 20121015
  Receipt Date: 20121015
  Transmission Date: 20130627
  Serious: No
  Sender: FDA-Public Use
  Company Number: US-BRISTOL-MYERS SQUIBB COMPANY-16353294

PATIENT
  Age: 44 Year
  Sex: Female

DRUGS (3)
  1. KENALOG-40 INJ [Suspect]
     Indication: DERMATITIS CONTACT
     Dosage: 1 DF = 2 cc
     Route: 030
     Dates: start: 20110826
  2. ZANTAC [Concomitant]
  3. ZYRTEC [Concomitant]

REACTIONS (1)
  - Lipodystrophy acquired [Unknown]
